FAERS Safety Report 9412633 (Version 1)
Quarter: 2013Q3

REPORT INFORMATION
  Report Type: Spontaneous
  Country: US (occurrence: US)
  Receive Date: 20130722
  Receipt Date: 20130722
  Transmission Date: 20140515
  Serious: No
  Sender: FDA-Public Use
  Company Number: US-TARO-2012P1061090

PATIENT
  Age: 75 Year
  Sex: Male
  Weight: 131.54 kg

DRUGS (8)
  1. CLOTRIMAZOLE AND BETAMETHASONE DIPROPIONATE [Suspect]
     Indication: MILIARIA
     Route: 061
  2. CLOTRIMAZOLE AND BETAMETHASONE DIPROPIONATE [Suspect]
     Indication: MILIARIA
     Route: 061
     Dates: start: 20121003
  3. ATENOLOL [Concomitant]
  4. METFORMIN [Concomitant]
  5. ACIPHEX [Concomitant]
  6. LUNESTA [Concomitant]
  7. TYLENOL [Concomitant]
  8. OTC ^STOMACH PILLS^ [Concomitant]

REACTIONS (1)
  - Drug ineffective [Not Recovered/Not Resolved]
